FAERS Safety Report 23240287 (Version 1)
Quarter: 2023Q4

REPORT INFORMATION
  Report Type: Report from Study
  Country: US (occurrence: US)
  Receive Date: 20231129
  Receipt Date: 20231129
  Transmission Date: 20240110
  Serious: Yes (Other)
  Sender: FDA-Public Use
  Company Number: US-JNJFOC-20231161443

PATIENT
  Age: 73 Year
  Sex: Male

DRUGS (1)
  1. ZYTIGA [Suspect]
     Active Substance: ABIRATERONE ACETATE
     Indication: Prostate cancer
     Route: 048

REACTIONS (5)
  - Pituitary-dependent Cushing^s syndrome [Unknown]
  - Swelling face [Unknown]
  - Bone swelling [Unknown]
  - Hypoacusis [Unknown]
  - Vision blurred [Unknown]
